FAERS Safety Report 16298611 (Version 1)
Quarter: 2019Q2

REPORT INFORMATION
  Report Type: Spontaneous
  Country: GB (occurrence: GB)
  Receive Date: 20190510
  Receipt Date: 20190510
  Transmission Date: 20190711
  Serious: Yes (Other)
  Sender: FDA-Public Use
  Company Number: GB-TEVA-2019-GB-1045989

PATIENT
  Age: 33 Year
  Sex: Female

DRUGS (1)
  1. PROPRANOLOL [Suspect]
     Active Substance: PROPRANOLOL HYDROCHLORIDE
     Indication: ANXIETY
     Dosage: 40 MILLIGRAM
     Dates: start: 20190220

REACTIONS (16)
  - Visual impairment [Recovering/Resolving]
  - Dizziness [Recovering/Resolving]
  - Hallucination [Recovering/Resolving]
  - Muscle spasms [Recovering/Resolving]
  - Substance-induced psychotic disorder [Recovering/Resolving]
  - Amnesia [Recovering/Resolving]
  - Depersonalisation/derealisation disorder [Recovering/Resolving]
  - Paraesthesia [Recovering/Resolving]
  - Vertigo [Recovering/Resolving]
  - Muscular weakness [Recovering/Resolving]
  - Dyspnoea [Recovering/Resolving]
  - Dysphonia [Recovering/Resolving]
  - Hypoaesthesia [Recovering/Resolving]
  - Confusional state [Recovering/Resolving]
  - Sleep disorder [Recovering/Resolving]
  - Mood altered [Recovering/Resolving]

NARRATIVE: CASE EVENT DATE: 20190223
